FAERS Safety Report 7963863-9 (Version None)
Quarter: 2011Q4

REPORT INFORMATION
  Report Type: 
  Country: None (occurrence: None)
  Receive Date: 20111208
  Receipt Date: 20111126
  Transmission Date: 20120403
  Serious: Yes (Hospitalization, Other)
  Sender: FDA-Public Use
  Company Number: US-BAYER-2010-007901

PATIENT
  Age: 39 Year
  Sex: Female
  Weight: 88.435 kg

DRUGS (18)
  1. ZESTORETIC [Concomitant]
     Indication: HYPERTENSION
     Dosage: 12.5 MG, DAILY
     Route: 048
  2. YAZ [Suspect]
     Indication: PREMENSTRUAL SYNDROME
     Dosage: UNK
     Dates: start: 20080901, end: 20091201
  3. PROTONIX [Concomitant]
     Dosage: 40 MG, DAILY
     Route: 048
     Dates: start: 20010101
  4. NAPROXEN (ALEVE) [Concomitant]
     Dosage: 220 MG, BID
     Route: 048
     Dates: start: 19900101, end: 20000101
  5. DESONIDE [Concomitant]
  6. LIPITOR [Concomitant]
     Indication: HYPERLIPIDAEMIA
     Dosage: 10 MG, DAILY
     Route: 048
     Dates: start: 20010101
  7. DROSPIRENONE AND ETHINYL ESTRADIOL [Suspect]
     Indication: PREMENSTRUAL SYNDROME
     Dosage: UNK
     Dates: start: 20091201, end: 20100501
  8. IBUPROFEN (ADVIL) [Concomitant]
     Dosage: 200 MG, TID
     Route: 048
     Dates: start: 19900101, end: 20100101
  9. UNISOM [Concomitant]
     Dosage: UNK UNK, PRN
     Route: 048
  10. BACTRIM DS [Concomitant]
     Dosage: UNK
     Dates: start: 20100313
  11. DESONIDE [Concomitant]
     Dosage: UNK UNK, BID
     Route: 061
     Dates: start: 20100401
  12. ACETAMINOPHEN [Concomitant]
  13. PEPCID [Concomitant]
     Route: 048
  14. LISINOPRIL [Concomitant]
     Dosage: UNK
     Dates: start: 20050101
  15. LISINOPRIL AND HYDROCHLOROTHIAZIDE [Concomitant]
     Dosage: UNK
     Route: 061
     Dates: start: 20100412
  16. SOLARAZE [Concomitant]
     Dosage: 3 %, UNK
     Dates: start: 20100515
  17. BENADRYL [ACRIVASTINE] [Concomitant]
     Dosage: 25 MG, PRN
     Route: 048
  18. SEPTRA DS [Concomitant]
     Dosage: 160 MG, BID
     Route: 048
     Dates: start: 20100401

REACTIONS (4)
  - DEEP VEIN THROMBOSIS [None]
  - CEREBRAL VENOUS THROMBOSIS [None]
  - INJURY [None]
  - PAIN [None]
